FAERS Safety Report 7889352-8 (Version None)
Quarter: 2011Q4

REPORT INFORMATION
  Report Type: 
  Country: None (occurrence: None)
  Receive Date: 20111103
  Receipt Date: 20111026
  Transmission Date: 20120403
  Serious: Yes (Hospitalization)
  Sender: FDA-Public Use
  Company Number: FR-BAYER-2011-104726

PATIENT
  Age: 57 Year
  Sex: Female
  Weight: 67 kg

DRUGS (7)
  1. RIFADIN [Suspect]
     Dosage: UNK
     Route: 048
     Dates: start: 20110808, end: 20110825
  2. MOXIFLOXACIN HCL [Suspect]
     Indication: LYMPH NODE TUBERCULOSIS
     Dosage: UNK
     Route: 048
     Dates: start: 20110811, end: 20110825
  3. PYRAZINAMIDE [Suspect]
     Indication: LYMPH NODE TUBERCULOSIS
     Dosage: UNK
     Route: 048
     Dates: start: 20110415, end: 20110419
  4. RIFAMPIN AND ISONIAZID [Suspect]
     Indication: LYMPH NODE TUBERCULOSIS
     Dosage: UNK UNK, BID
     Route: 048
     Dates: start: 20110623, end: 20110713
  5. RIFADIN [Suspect]
     Dosage: 600 MG, QD
     Route: 048
     Dates: start: 20110415, end: 20110620
  6. MYAMBUTOL [Suspect]
     Indication: LYMPH NODE TUBERCULOSIS
     Dosage: 1200 MG, QD
     Route: 048
     Dates: start: 20110415, end: 20110620
  7. RIFADIN [Suspect]
     Indication: LYMPH NODE TUBERCULOSIS
     Dosage: UNK
     Route: 048
     Dates: start: 20110720, end: 20110725

REACTIONS (10)
  - RASH [None]
  - URTICARIA [None]
  - FLUSHING [None]
  - LICHENOID KERATOSIS [None]
  - RASH MACULAR [None]
  - SKIN TOXICITY [None]
  - PRURITUS [None]
  - EYELID OEDEMA [None]
  - ERYTHEMA [None]
  - SKIN EXFOLIATION [None]
